FAERS Safety Report 5669159-2 (Version None)
Quarter: 2008Q1

REPORT INFORMATION
  Report Type: 
  Country: None (occurrence: None)
  Receive Date: 20080311
  Receipt Date: 20080311
  Transmission Date: 20080703
  Serious: Yes (Death, Hospitalization)
  Sender: FDA-Public Use
  Company Number: None

PATIENT
  Age: 55 Year
  Sex: Male
  Weight: 65.5448 kg

DRUGS (14)
  1. OXALIPLATIN [Suspect]
     Indication: NEOPLASM MALIGNANT
     Dosage: 130 MG/M2 IV Q 21 D
     Route: 042
     Dates: start: 20080303
  2. DOCETAXEL [Suspect]
     Indication: NEOPLASM MALIGNANT
     Dosage: 60MG/M2 IV Q 21 D
     Route: 042
     Dates: start: 20080303
  3. ALBUTEROL [Concomitant]
  4. ASPIRIN [Concomitant]
  5. COLESTIPOL HYDROCHLORIDE [Concomitant]
  6. FLUNISOLIDE [Concomitant]
  7. FOMOTEROL [Concomitant]
  8. LEVOTHYROXINE SODIUM [Concomitant]
  9. METOPROLOL TARTRATE [Concomitant]
  10. OXYCODONE HCL [Concomitant]
  11. TEMAZEPAM [Concomitant]
  12. TRAMADOL HCL [Concomitant]
  13. STANNOUS FLUORIDE [Concomitant]
  14. URSDIOL [Concomitant]

REACTIONS (19)
  - ACTIVATED PARTIAL THROMBOPLASTIN TIME PROLONGED [None]
  - ASPARTATE AMINOTRANSFERASE INCREASED [None]
  - ATRIAL FIBRILLATION [None]
  - BLOOD BILIRUBIN INCREASED [None]
  - BLOOD CALCIUM DECREASED [None]
  - BLOOD CHLORIDE DECREASED [None]
  - BLOOD GLUCOSE INCREASED [None]
  - BLOOD PRESSURE DIASTOLIC DECREASED [None]
  - BLOOD SODIUM DECREASED [None]
  - BRONCHOPNEUMONIA [None]
  - CHRONIC OBSTRUCTIVE PULMONARY DISEASE [None]
  - DRUG INEFFECTIVE [None]
  - HEART RATE INCREASED [None]
  - HYPOTENSION [None]
  - NAUSEA [None]
  - PLATELET COUNT DECREASED [None]
  - SEPSIS [None]
  - TACHYPNOEA [None]
  - WHITE BLOOD CELL COUNT DECREASED [None]
